FAERS Safety Report 10196883 (Version 1)
Quarter: 2014Q2

REPORT INFORMATION
  Report Type: Spontaneous
  Country: SE (occurrence: SE)
  Receive Date: 20140527
  Receipt Date: 20140527
  Transmission Date: 20141212
  Serious: Yes (Hospitalization)
  Sender: FDA-Public Use
  Company Number: SE-ASTRAZENECA-2014SE34735

PATIENT
  Age: 88 Year
  Sex: Male

DRUGS (6)
  1. SELOKEN ZOC [Suspect]
     Route: 048
  2. SELOKEN ZOC [Suspect]
     Dosage: DOSE HALVED
     Route: 048
     Dates: start: 201404
  3. ENALAPRIL [Concomitant]
  4. FELODIPINE [Concomitant]
  5. XATRAL [Concomitant]
  6. OMEPRAZOLE [Concomitant]

REACTIONS (1)
  - Ventricular extrasystoles [Recovering/Resolving]
